FAERS Safety Report 9374411 (Version 1)
Quarter: 2013Q2

REPORT INFORMATION
  Report Type: Report from Study
  Country: US (occurrence: US)
  Receive Date: 20130628
  Receipt Date: 20130628
  Transmission Date: 20140414
  Serious: Yes (Death)
  Sender: FDA-Public Use
  Company Number: PHEH2013US013905

PATIENT
  Age: 88 Year
  Sex: Male

DRUGS (1)
  1. GLEEVEC [Suspect]
     Indication: HAEMATOPOIETIC NEOPLASM
     Dosage: 400 MG, DAILY
     Route: 048
     Dates: start: 20130321

REACTIONS (1)
  - Death [Fatal]
